FAERS Safety Report 24044817 (Version 1)
Quarter: 2024Q3

REPORT INFORMATION
  Report Type: Spontaneous
  Country: CN (occurrence: CN)
  Receive Date: 20240703
  Receipt Date: 20240703
  Transmission Date: 20241017
  Serious: Yes (Other)
  Sender: RANBAXY
  Company Number: CN-SUN PHARMACEUTICAL INDUSTRIES LTD-2024R1-454125

PATIENT
  Age: 65 Year
  Sex: Female

DRUGS (4)
  1. TOBRAMYCIN [Suspect]
     Active Substance: TOBRAMYCIN\TOBRAMYCIN SULFATE
     Indication: Corneal oedema
     Dosage: UNK
     Route: 047
  2. DEXAMETHASONE [Suspect]
     Active Substance: DEXAMETHASONE
     Indication: Corneal oedema
     Dosage: UNK
     Route: 047
  3. DICLOFENAC [Suspect]
     Active Substance: DICLOFENAC
     Indication: Corneal oedema
     Dosage: UNK
     Route: 065
  4. LEVOFLOXACIN [Suspect]
     Active Substance: LEVOFLOXACIN
     Indication: Corneal oedema
     Dosage: UNK
     Route: 065

REACTIONS (1)
  - Corneal opacity [Unknown]
